FAERS Safety Report 21252501 (Version 1)
Quarter: 2022Q3

REPORT INFORMATION
  Report Type: Spontaneous
  Country: US (occurrence: US)
  Receive Date: 20220825
  Receipt Date: 20220825
  Transmission Date: 20221026
  Serious: Yes (Hospitalization)
  Sender: FDA-Public Use
  Company Number: US-MAYNE PHARMA-2022MYN001238

PATIENT

DRUGS (1)
  1. CARBIDOPA\LEVODOPA [Suspect]
     Active Substance: CARBIDOPA\LEVODOPA
     Indication: Parkinson^s disease
     Dosage: 25/100 MG, QD (12 TABLETS PER DAY), EVERY 1.5 HOURS
     Route: 048

REACTIONS (4)
  - Dysphonia [Recovering/Resolving]
  - Posture abnormal [Recovering/Resolving]
  - Dyspnoea [Recovering/Resolving]
  - Muscle rigidity [Recovering/Resolving]
